FAERS Safety Report 23672426 (Version 1)
Quarter: 2024Q1

REPORT INFORMATION
  Report Type: Spontaneous
  Country: US (occurrence: None)
  Receive Date: 20240325
  Receipt Date: 20240325
  Transmission Date: 20240410
  Serious: Yes (Hospitalization)
  Sender: FDA-Public Use
  Company Number: None

PATIENT
  Age: 17 Year
  Sex: Male

DRUGS (1)
  1. TAVNEOS [Suspect]
     Active Substance: AVACOPAN

REACTIONS (6)
  - Acne [None]
  - Increased appetite [None]
  - Anger [None]
  - Glomerular filtration rate decreased [None]
  - Blood creatine increased [None]
  - Therapy change [None]

NARRATIVE: CASE EVENT DATE: 20240322
